FAERS Safety Report 12954538 (Version 1)
Quarter: 2016Q4

REPORT INFORMATION
  Report Type: Spontaneous
  Country: US (occurrence: US)
  Receive Date: 20161117
  Receipt Date: 20161117
  Transmission Date: 20170207
  Serious: No
  Sender: FDA-Public Use
  Company Number: None

PATIENT
  Age: 8 Month
  Sex: Female
  Weight: 7.6 kg

DRUGS (1)
  1. GUANFACINE ER [Suspect]
     Active Substance: GUANFACINE
     Indication: ATTENTION DEFICIT/HYPERACTIVITY DISORDER
     Route: 048
     Dates: start: 20141111, end: 20161101

REACTIONS (4)
  - Drug effect decreased [None]
  - Agitation [None]
  - Drug ineffective [None]
  - Disturbance in attention [None]

NARRATIVE: CASE EVENT DATE: 20161101
